FAERS Safety Report 5728753-0 (Version None)
Quarter: 2008Q2

REPORT INFORMATION
  Report Type: 
  Country: None (occurrence: None)
  Receive Date: 20080506
  Receipt Date: 20080425
  Transmission Date: 20081010
  Serious: Yes (Other)
  Sender: FDA-Public Use
  Company Number: B0360741A

PATIENT
  Sex: Male

DRUGS (15)
  1. PAROXETINE HCL [Suspect]
     Indication: DEPRESSION
     Dosage: 20MG PER DAY
     Route: 065
     Dates: start: 19920701
  2. GAMANIL [Concomitant]
     Dates: start: 19960101
  3. DOTHIEPIN HYDROCHLORIDE [Concomitant]
  4. ZYBAN [Concomitant]
     Dates: start: 20010515
  5. ANTIBIOTICS [Concomitant]
     Dates: start: 20011101
  6. NICOTINE SUBSTITUTE [Concomitant]
     Dates: start: 20020201
  7. PROCHLORPERAZINE [Concomitant]
     Dates: start: 20020301
  8. ASPIRIN [Concomitant]
     Dates: start: 20060101
  9. CLOPIDOGREL [Concomitant]
     Dates: start: 20060101, end: 20070101
  10. ATORVASTATIN [Concomitant]
  11. RAMIPRIL [Concomitant]
     Dates: start: 20060101
  12. DILTIAZEM [Concomitant]
     Dates: start: 20060101
  13. GTN SPRAY [Concomitant]
     Dates: start: 20060101
  14. GLUCOSAMINE [Concomitant]
     Dates: start: 20070601
  15. IPRATROPIUM BROMIDE [Concomitant]
     Dates: start: 20070101

REACTIONS (8)
  - CHEST PAIN [None]
  - DIZZINESS [None]
  - DRUG WITHDRAWAL SYNDROME [None]
  - DYSPEPSIA [None]
  - HEADACHE [None]
  - HYPOAESTHESIA [None]
  - PARAESTHESIA [None]
  - SUICIDAL IDEATION [None]
